FAERS Safety Report 9255040 (Version 4)
Quarter: 2014Q1

REPORT INFORMATION
  Report Type: Spontaneous
  Country: US (occurrence: US)
  Receive Date: 20130425
  Receipt Date: 20140130
  Transmission Date: 20141002
  Serious: Yes (Hospitalization, Other)
  Sender: FDA-Public Use
  Company Number: US-ASTRAZENECA-2013SE27504

PATIENT
  Age: 68 Year
  Sex: Female
  Weight: 96.2 kg

DRUGS (30)
  1. NEXIUM [Suspect]
     Indication: GASTROOESOPHAGEAL REFLUX DISEASE
     Route: 048
     Dates: start: 20010922
  2. NEXIUM [Suspect]
     Indication: ABDOMINAL PAIN UPPER
     Route: 048
     Dates: start: 20010922
  3. NEXIUM [Suspect]
     Indication: ARTHRALGIA
     Route: 048
     Dates: start: 20010922
  4. NEXIUM [Suspect]
     Indication: GASTROOESOPHAGEAL REFLUX DISEASE
     Route: 048
     Dates: start: 20050208
  5. NEXIUM [Suspect]
     Indication: ABDOMINAL PAIN UPPER
     Route: 048
     Dates: start: 20050208
  6. NEXIUM [Suspect]
     Indication: ARTHRALGIA
     Route: 048
     Dates: start: 20050208
  7. RANITIDINE [Concomitant]
     Indication: GASTROOESOPHAGEAL REFLUX DISEASE
     Dates: start: 2005
  8. PRILOSEC [Concomitant]
     Dosage: OTC
     Dates: start: 20050201
  9. PRILOSEC [Concomitant]
     Dates: start: 2009, end: 2013
  10. PRILOSEC [Concomitant]
     Dates: start: 20130422
  11. CYCLOBENZAPRINE [Concomitant]
  12. HYDROCODONE [Concomitant]
  13. SULINDAC [Concomitant]
  14. METOPROLOL [Concomitant]
     Dates: start: 20130422
  15. POTASSIUM [Concomitant]
  16. TUMS [Concomitant]
  17. ROLAIDS [Concomitant]
  18. PEPTO-BISMOL [Concomitant]
  19. PREDNISONE [Concomitant]
     Dates: start: 20080902
  20. PREVACID [Concomitant]
     Dates: start: 2007, end: 200904
  21. PREVACID [Concomitant]
     Dates: start: 20080902
  22. CELEXA [Concomitant]
     Dates: start: 20080902
  23. ATIVAN [Concomitant]
     Dates: start: 20080902
  24. DARVOCET [Concomitant]
     Dates: start: 20080902
  25. TRIAMTERENE HCTZ [Concomitant]
     Dates: start: 20080902
  26. ACIPHEX [Concomitant]
     Dates: start: 2002
  27. ACIPHEX [Concomitant]
     Dates: start: 2005
  28. ZEGERID [Concomitant]
     Dates: start: 200605, end: 2007
  29. PREMARIN [Concomitant]
     Dates: start: 200204, end: 200207
  30. ESTRADIOL [Concomitant]
     Dates: start: 200501, end: 200706

REACTIONS (20)
  - Neoplasm malignant [Unknown]
  - Renal disorder [Unknown]
  - Cholelithiasis [Unknown]
  - Arthropathy [Unknown]
  - Joint dislocation [Unknown]
  - Depression [Unknown]
  - Osteoporosis [Unknown]
  - Bone disorder [Unknown]
  - Upper limb fracture [Unknown]
  - Bone pain [Unknown]
  - Angina pectoris [Unknown]
  - Calcium deficiency [Unknown]
  - Arthritis [Unknown]
  - Atrophy [Unknown]
  - Cardiovascular disorder [Unknown]
  - Peripheral arterial occlusive disease [Unknown]
  - Rheumatoid arthritis [Unknown]
  - Chondropathy [Unknown]
  - Osteoarthritis [Unknown]
  - Hypertension [Unknown]
